FAERS Safety Report 15532780 (Version 1)
Quarter: 2018Q4

REPORT INFORMATION
  Report Type: Spontaneous
  Country: FR (occurrence: FR)
  Receive Date: 20181019
  Receipt Date: 20181019
  Transmission Date: 20190205
  Serious: Yes (Congenital Anomaly)
  Sender: FDA-Public Use
  Company Number: PHHY2018FR128218

PATIENT
  Sex: Female
  Weight: 2.77 kg

DRUGS (9)
  1. COAPROVEL [Suspect]
     Active Substance: HYDROCHLOROTHIAZIDE\IRBESARTAN
     Indication: HYPERTENSION
     Dosage: MATRENAL DOSE: 1 DF, QD
     Route: 064
     Dates: start: 20160914, end: 20170214
  2. METFORMIN HYDROCHLORIDE. [Suspect]
     Active Substance: METFORMIN HYDROCHLORIDE
     Indication: TYPE 2 DIABETES MELLITUS
     Dosage: MATERNAL DOSE: 2000 MG, QD
     Route: 064
     Dates: start: 20160914, end: 20170214
  3. TRANDATE [Suspect]
     Active Substance: LABETALOL HYDROCHLORIDE
     Indication: PRODUCT USED FOR UNKNOWN INDICATION
     Dosage: MATRENAL DOSE:400 MG, QD
     Route: 064
     Dates: start: 20170215, end: 20170531
  4. AERIUS (DESLORATADINE) [Suspect]
     Active Substance: DESLORATADINE
     Indication: HYPERSENSITIVITY
     Dosage: MATRENAL DOSE: 5 MG, QD
     Route: 064
     Dates: start: 20160914, end: 20170531
  5. LOXEN (NICARDIPINE HYDROCHLORIDE) [Suspect]
     Active Substance: NICARDIPINE HYDROCHLORIDE
     Indication: PRODUCT USED FOR UNKNOWN INDICATION
     Dosage: MATRENAL DOSE: UNK UNK, QD
     Route: 064
     Dates: start: 20170215, end: 20170531
  6. INDOCYANINE GREEN. [Suspect]
     Active Substance: INDOCYANINE GREEN
     Indication: ANGIOGRAM
     Dosage: MATRENAL DOSE:1 DF, QD
     Route: 064
     Dates: start: 201609, end: 201609
  7. FLUORESCEIN SODIUM. [Suspect]
     Active Substance: FLUORESCEIN SODIUM
     Indication: ANGIOGRAM
     Dosage: MATERNAL DOSE: 1 DF, QD
     Route: 064
     Dates: start: 201609, end: 201609
  8. AMLODIPINE [Suspect]
     Active Substance: AMLODIPINE BESYLATE
     Indication: HYPERTENSION
     Dosage: MATERNAL DOSE: 10 MG, QD
     Route: 064
     Dates: start: 20160914, end: 20170214
  9. INSULINE [Concomitant]
     Active Substance: INSULIN NOS
     Indication: PRODUCT USED FOR UNKNOWN INDICATION
     Dosage: MATRENAL DOSE: UNKNOWN
     Route: 065

REACTIONS (3)
  - Patent ductus arteriosus [Recovered/Resolved]
  - Low birth weight baby [Unknown]
  - Haemangioma congenital [Not Recovered/Not Resolved]

NARRATIVE: CASE EVENT DATE: 20170531
